FAERS Safety Report 5899371-9 (Version None)
Quarter: 2008Q3

REPORT INFORMATION
  Report Type: 
  Country: None (occurrence: None)
  Receive Date: 20080924
  Receipt Date: 20080909
  Transmission Date: 20090109
  Serious: Yes (Other)
  Sender: FDA-Public Use
  Company Number: 033506

PATIENT
  Age: 29 Year
  Sex: Female

DRUGS (5)
  1. TRAZODONE HCL [Suspect]
     Indication: SOMNOLENCE
     Dosage: 1-3 TABLETS AT BEDTIME PRN,
     Dates: start: 20080701, end: 20080901
  2. AMBIEN [Suspect]
     Indication: SOMNOLENCE
     Dates: start: 20080501, end: 20080701
  3. EXCEDRIN (ACETYLSALICYLIC ACID, CAFFEINE) [Concomitant]
  4. TEGRETOL [Concomitant]
  5. ALBUTEROL SULFATE [Concomitant]

REACTIONS (2)
  - CONVULSION [None]
  - DRUG SCREEN FALSE POSITIVE [None]
